FAERS Safety Report 8762453 (Version 10)
Quarter: 2014Q3

REPORT INFORMATION
  Report Type: Spontaneous
  Country: US (occurrence: US)
  Receive Date: 20120830
  Receipt Date: 20140708
  Transmission Date: 20150326
  Serious: Yes (Hospitalization, Disabling, Other)
  Sender: FDA-Public Use
  Company Number: US-009507513-1208USA008536

PATIENT
  Sex: Female
  Weight: 53.52 kg

DRUGS (2)
  1. FOSAMAX [Suspect]
     Active Substance: ALENDRONATE SODIUM
     Indication: OSTEOPOROSIS
     Dosage: 70 MG, QW
     Route: 048
     Dates: start: 2003, end: 2010
  2. ALENDRONATE SODIUM. [Suspect]
     Active Substance: ALENDRONATE SODIUM
     Indication: OSTEOPOROSIS
     Dosage: 70 MG, QW
     Route: 048

REACTIONS (88)
  - Femoral neck fracture [Not Recovered/Not Resolved]
  - Open reduction of fracture [Unknown]
  - Femur fracture [Unknown]
  - Open reduction of fracture [Unknown]
  - Humerus fracture [Unknown]
  - Surgery [Unknown]
  - Cystopexy [Unknown]
  - Foot fracture [Unknown]
  - Pollakiuria [Unknown]
  - Senile osteoporosis [Unknown]
  - Paraesthesia [Unknown]
  - Hypomagnesaemia [Unknown]
  - Kyphosis [Unknown]
  - Medical device removal [Unknown]
  - Anaemia [Recovered/Resolved]
  - Intervertebral disc space narrowing [Unknown]
  - Vertebral foraminal stenosis [Unknown]
  - Large intestine polyp [Unknown]
  - Dyspnoea [Unknown]
  - Paraesthesia [Unknown]
  - Fractured sacrum [Recovered/Resolved]
  - Arteriosclerosis [Unknown]
  - Back pain [Not Recovered/Not Resolved]
  - Open reduction of fracture [Unknown]
  - Depression [Recovered/Resolved]
  - Arthropathy [Unknown]
  - Fall [Unknown]
  - Gout [Unknown]
  - Dyspnoea [Unknown]
  - Ulna fracture [Unknown]
  - Medical device removal [Unknown]
  - Extraskeletal ossification [Unknown]
  - Pain in extremity [Not Recovered/Not Resolved]
  - Hip arthroplasty [Unknown]
  - Surgery [Unknown]
  - Spinal pain [Unknown]
  - Anxiety [Recovered/Resolved]
  - Hypertension [Unknown]
  - Spinal osteoarthritis [Unknown]
  - Transfusion [Unknown]
  - Upper limb fracture [Not Recovered/Not Resolved]
  - Hyperparathyroidism secondary [Unknown]
  - Arthritis [Unknown]
  - Rib fracture [Recovering/Resolving]
  - Rotator cuff syndrome [Unknown]
  - Ulna fracture [Unknown]
  - Fall [Unknown]
  - Enthesopathy [Unknown]
  - Femur fracture [Recovering/Resolving]
  - Urinary tract infection [Unknown]
  - Deafness [Unknown]
  - Muscle strain [Unknown]
  - Osteoarthritis [Not Recovered/Not Resolved]
  - Intervertebral disc protrusion [Unknown]
  - Cyst removal [Unknown]
  - Insomnia [Unknown]
  - Cystitis [Unknown]
  - Hypoaesthesia [Unknown]
  - Osteoarthritis [Unknown]
  - Pubis fracture [Recovered/Resolved]
  - Fracture nonunion [Unknown]
  - Skin cancer [Unknown]
  - Surgery [Unknown]
  - Vitamin D deficiency [Unknown]
  - Hyperlipidaemia [Unknown]
  - Foot deformity [Unknown]
  - Scapula fracture [Unknown]
  - Muscular weakness [Unknown]
  - Fatigue [Unknown]
  - Pleural fibrosis [Unknown]
  - Spinal osteoarthritis [Unknown]
  - Abdominal discomfort [Unknown]
  - Femur fracture [Unknown]
  - Colectomy [Unknown]
  - Shoulder arthroplasty [Unknown]
  - Blood creatinine increased [Unknown]
  - Injury [Unknown]
  - Spondylolisthesis [Unknown]
  - Hypothyroidism [Unknown]
  - Cataract operation [Unknown]
  - Thyroid disorder [Unknown]
  - Type 2 diabetes mellitus [Unknown]
  - Haemarthrosis [Unknown]
  - Gastrooesophageal reflux disease [Unknown]
  - Spinal compression fracture [Not Recovered/Not Resolved]
  - Osteopenia [Unknown]
  - Radius fracture [Unknown]
  - Arthropathy [Unknown]

NARRATIVE: CASE EVENT DATE: 20030107
